FAERS Safety Report 19275869 (Version 1)
Quarter: 2021Q2

REPORT INFORMATION
  Report Type: Report from Study
  Country: CO (occurrence: CO)
  Receive Date: 20210519
  Receipt Date: 20210519
  Transmission Date: 20210717
  Serious: Yes (Other)
  Sender: FDA-Public Use
  Company Number: CO-BRISTOL-MYERS SQUIBB COMPANY-BMS-2021-047481

PATIENT
  Age: 75 Year
  Sex: Female

DRUGS (1)
  1. ABATACEPT [Suspect]
     Active Substance: ABATACEPT
     Indication: RHEUMATOID ARTHRITIS
     Dosage: 750 MILLIGRAM, EVERY 28 DAYS
     Route: 042
     Dates: start: 20181101

REACTIONS (4)
  - Osteoporotic fracture [Recovered/Resolved]
  - Intervertebral disc protrusion [Recovered/Resolved]
  - Scoliosis [Recovered/Resolved]
  - Bone marrow oedema [Recovered/Resolved]

NARRATIVE: CASE EVENT DATE: 20210510
